FAERS Safety Report 24431428 (Version 1)
Quarter: 2024Q4

REPORT INFORMATION
  Report Type: Report from Study
  Country: CA (occurrence: CA)
  Receive Date: 20241014
  Receipt Date: 20241014
  Transmission Date: 20250115
  Serious: Yes (Hospitalization, Other)
  Sender: ROCHE
  Company Number: CA-ROCHE-10000103185

PATIENT

DRUGS (4)
  1. RITUXIMAB [Suspect]
     Active Substance: RITUXIMAB
     Indication: Central nervous system lymphoma
     Route: 065
  2. METHOTREXATE [Suspect]
     Active Substance: METHOTREXATE
     Indication: Central nervous system lymphoma
     Route: 065
  3. CYTARABINE [Suspect]
     Active Substance: CYTARABINE
     Indication: Central nervous system lymphoma
     Route: 065
  4. THIOTEPA [Suspect]
     Active Substance: THIOTEPA
     Indication: Central nervous system lymphoma
     Route: 065

REACTIONS (23)
  - Anaemia [Unknown]
  - Thrombocytopenia [Unknown]
  - Neutropenia [Unknown]
  - Cellulitis [Unknown]
  - Viral infection [Unknown]
  - Bacteraemia [Unknown]
  - Urinary tract infection [Unknown]
  - Pneumonia [Unknown]
  - Opportunistic infection [Unknown]
  - Blastomycosis [Unknown]
  - Herpes simplex encephalitis [Unknown]
  - Disseminated varicella zoster virus infection [Unknown]
  - Pneumonia cytomegaloviral [Unknown]
  - Febrile neutropenia [Unknown]
  - Embolism venous [Unknown]
  - Deep vein thrombosis [Unknown]
  - Acute kidney injury [Unknown]
  - Gastrointestinal injury [Unknown]
  - Abdominal discomfort [Unknown]
  - Hypertransaminasaemia [Unknown]
  - Mucosal inflammation [Unknown]
  - Neurotoxicity [Unknown]
  - Pneumocystis jirovecii pneumonia [Unknown]
